FAERS Safety Report 11776379 (Version 1)
Quarter: 2015Q4

REPORT INFORMATION
  Report Type: Spontaneous
  Country: CA (occurrence: CA)
  Receive Date: 20151125
  Receipt Date: 20151125
  Transmission Date: 20160304
  Serious: Yes (Hospitalization)
  Sender: FDA-Public Use
  Company Number: CA-TEVA-611437ACC

PATIENT
  Age: 39 Year
  Sex: Female

DRUGS (4)
  1. CYCLOBENZAPRINE-10 - TAB 10MG [Suspect]
     Active Substance: CYCLOBENZAPRINE
     Indication: MUSCULOSKELETAL STIFFNESS
     Dosage: 10 MILLIGRAM DAILY;
     Route: 048
  2. NOVO-GESIC [Concomitant]
  3. NEXIUM [Concomitant]
     Active Substance: ESOMEPRAZOLE MAGNESIUM
  4. APO-NAPROXEN EC [Concomitant]

REACTIONS (7)
  - Presyncope [Recovered/Resolved]
  - Electrocardiogram repolarisation abnormality [Recovered/Resolved]
  - Palpitations [Recovered/Resolved]
  - Chest pain [Recovered/Resolved]
  - Dyspnoea [Recovered/Resolved]
  - Heart rate increased [Recovered/Resolved]
  - Electrocardiogram QT prolonged [Recovered/Resolved]
